FAERS Safety Report 16847125 (Version 2)
Quarter: 2019Q4

REPORT INFORMATION
  Report Type: Spontaneous
  Country: US (occurrence: US)
  Receive Date: 20190924
  Receipt Date: 20191009
  Transmission Date: 20200122
  Serious: Yes (Death, Hospitalization)
  Sender: FDA-Public Use
  Company Number: US-TEVA-2019-US-1112260

PATIENT
  Age: 33 Year
  Sex: Female

DRUGS (8)
  1. CIPROFLOXACIN. [Suspect]
     Active Substance: CIPROFLOXACIN
     Indication: ANTIBIOTIC THERAPY
     Route: 048
  2. CYTARABINE. [Suspect]
     Active Substance: CYTARABINE
     Indication: ACUTE MYELOID LEUKAEMIA
     Route: 065
  3. IDARUBICIN [Suspect]
     Active Substance: IDARUBICIN
     Indication: ACUTE MYELOID LEUKAEMIA
     Route: 065
  4. PIPERACILLIN/TAZOBACTAM [Suspect]
     Active Substance: PIPERACILLIN SODIUM\TAZOBACTAM SODIUM
     Indication: NEUTROPENIC COLITIS
     Route: 042
  5. CASPOFUNGIN [Concomitant]
     Active Substance: CASPOFUNGIN
     Indication: PROPHYLAXIS
     Route: 065
  6. VORICONAZOLE. [Concomitant]
     Active Substance: VORICONAZOLE
     Indication: PROPHYLAXIS
     Route: 065
  7. AZACITIDINE. [Suspect]
     Active Substance: AZACITIDINE
     Indication: CHEMOTHERAPY
     Route: 065
  8. METRONIDAZOLE. [Suspect]
     Active Substance: METRONIDAZOLE
     Indication: ANTIBIOTIC THERAPY
     Route: 065

REACTIONS (13)
  - Fusarium infection [Unknown]
  - Respiratory failure [Unknown]
  - Eye abscess [Recovering/Resolving]
  - Infective aneurysm [Recovered/Resolved]
  - Thrombocytopenia [Unknown]
  - Implant site extravasation [Unknown]
  - Septic shock [Fatal]
  - Cytopenia [Unknown]
  - Cholecystitis acute [Recovered/Resolved]
  - Staphylococcal infection [Recovered/Resolved]
  - Abscess fungal [Recovering/Resolving]
  - Pneumonia [Unknown]
  - Endophthalmitis [Recovering/Resolving]
